FAERS Safety Report 24968143 (Version 3)
Quarter: 2025Q4

REPORT INFORMATION
  Report Type: Spontaneous
  Country: US (occurrence: US)
  Receive Date: 20250214
  Receipt Date: 20251006
  Transmission Date: 20260118
  Serious: No
  Sender: ROCHE
  Company Number: US-ROCHE-10000208010

PATIENT
  Sex: Male
  Weight: 90.72 kg

DRUGS (1)
  1. HEMLIBRA [Suspect]
     Active Substance: EMICIZUMAB-KXWH
     Indication: Factor VIII deficiency
     Dosage: STRENGTH: 150MG/ML.
     Route: 058
     Dates: start: 202311

REACTIONS (2)
  - Haemorrhage [Unknown]
  - Off label use [Unknown]
